FAERS Safety Report 13024530 (Version 6)
Quarter: 2018Q2

REPORT INFORMATION
  Report Type: Report from Study
  Country: FR (occurrence: FR)
  Receive Date: 20161213
  Receipt Date: 20180621
  Transmission Date: 20180711
  Serious: Yes (Hospitalization, Other)
  Sender: FDA-Public Use
  Company Number: PHHY2016FR094916

PATIENT
  Age: 92 Year
  Sex: Male

DRUGS (1)
  1. ZARZIO [Suspect]
     Active Substance: FILGRASTIM
     Indication: NEUTROPENIA
     Dosage: 30 OT, UNK
     Route: 058
     Dates: start: 20160211

REACTIONS (5)
  - Chondrocalcinosis [Recovered/Resolved]
  - Upper limb fracture [Unknown]
  - Upper limb fracture [Recovered/Resolved]
  - Fall [Unknown]
  - Fall [Recovered/Resolved]

NARRATIVE: CASE EVENT DATE: 20160309
